FAERS Safety Report 8472286-8 (Version None)
Quarter: 2012Q2

REPORT INFORMATION
  Report Type: 
  Country: None (occurrence: None)
  Receive Date: 20120627
  Receipt Date: 20120618
  Transmission Date: 20120825
  Serious: Yes (Hospitalization)
  Sender: FDA-Public Use
  Company Number: FR-ASTRAZENECA-2011SE22417

PATIENT
  Sex: Female

DRUGS (5)
  1. PREDNISONE TAB [Concomitant]
     Dates: start: 20060101
  2. ERYTHROPOETIN [Concomitant]
  3. NEXIUM [Suspect]
     Route: 048
     Dates: end: 20110329
  4. INDOMETHACIN [Suspect]
     Route: 048
     Dates: end: 20110323
  5. FERINJECT [Concomitant]

REACTIONS (2)
  - TUBULOINTERSTITIAL NEPHRITIS [None]
  - RENAL FAILURE ACUTE [None]
